FAERS Safety Report 8134950-X (Version None)
Quarter: 2012Q1

REPORT INFORMATION
  Report Type: 
  Country: None (occurrence: None)
  Receive Date: 20120214
  Receipt Date: 20120203
  Transmission Date: 20120608
  Serious: Yes (Hospitalization)
  Sender: FDA-Public Use
  Company Number: JP-SANOFI-AVENTIS-2011SA075835

PATIENT
  Age: 67 Year
  Sex: Male

DRUGS (12)
  1. ZOLPIDEM [Suspect]
     Route: 048
     Dates: end: 20111019
  2. SITAGLIPTIN PHOSPHATE [Suspect]
     Route: 048
     Dates: end: 20111019
  3. DIFLUPREDNATE [Concomitant]
     Dates: end: 20111019
  4. PLAVIX [Suspect]
     Route: 048
     Dates: start: 20110901, end: 20111019
  5. ARICEPT [Suspect]
     Route: 048
     Dates: end: 20111019
  6. URINORM [Concomitant]
     Route: 048
     Dates: end: 20111019
  7. PLAVIX [Suspect]
     Indication: CEREBRAL INFARCTION
     Route: 048
     Dates: start: 20100528, end: 20110831
  8. TELMISARTAN AND HYDROCHLOROTHIAZIDE [Suspect]
     Route: 048
     Dates: end: 20111019
  9. ITAVASTATIN [Suspect]
     Route: 048
     Dates: end: 20111019
  10. AMLODIPINE [Suspect]
     Dosage: ORODISPERSIBLE CR TABLET
     Route: 048
  11. MADOPAR [Concomitant]
     Route: 048
     Dates: end: 20111019
  12. TALION [Concomitant]
     Dosage: ORODISPERSIBLE CR TABLET
     Route: 048

REACTIONS (3)
  - BLOOD CREATINE PHOSPHOKINASE INCREASED [None]
  - NEPHROPATHY [None]
  - URINARY TRACT INFECTION [None]
